FAERS Safety Report 10052048 (Version 3)
Quarter: 2014Q2

REPORT INFORMATION
  Report Type: Spontaneous
  Country: HU (occurrence: HU)
  Receive Date: 20140402
  Receipt Date: 20140501
  Transmission Date: 20141212
  Serious: Yes (Other)
  Sender: FDA-Public Use
  Company Number: PHHY2014HU035441

PATIENT
  Age: 77 Year
  Sex: Male

DRUGS (10)
  1. AKTIL DUO (AMOKSIKLAV) [Suspect]
     Indication: CHRONIC OBSTRUCTIVE PULMONARY DISEASE
     Route: 048
     Dates: start: 20140305, end: 20140305
  2. AKTIL DUO (AMOKSIKLAV) [Suspect]
     Indication: OFF LABEL USE
  3. CORDARONE [Concomitant]
  4. SERETIDE DISCUS [Concomitant]
  5. SPIRIVA [Concomitant]
  6. VENTOLINE [Concomitant]
  7. BRINALDIX [Concomitant]
  8. AMBROBENE [Concomitant]
  9. EUPHYLONG [Concomitant]
  10. SYNCUMAR [Concomitant]

REACTIONS (1)
  - Loss of consciousness [Recovered/Resolved]
